FAERS Safety Report 5971857-8 (Version None)
Quarter: 2008Q4

REPORT INFORMATION
  Report Type: 
  Country: None (occurrence: None)
  Receive Date: 20081125
  Receipt Date: 20081113
  Transmission Date: 20090506
  Serious: Yes (Hospitalization)
  Sender: FDA-Public Use
  Company Number: US025037

PATIENT
  Age: 19 Year
  Sex: Male

DRUGS (1)
  1. PROVIGIL [Suspect]
     Dosage: 6 G THIRTY 200MG TABLETS IN ONE DAY ORAL
     Route: 048

REACTIONS (7)
  - AGITATION [None]
  - BLOOD CREATINE PHOSPHOKINASE INCREASED [None]
  - BLOOD PRESSURE INCREASED [None]
  - BODY TEMPERATURE INCREASED [None]
  - DELIRIUM [None]
  - HEART RATE INCREASED [None]
  - INCORRECT DOSE ADMINISTERED [None]
